FAERS Safety Report 9723315 (Version 2)
Quarter: 2013Q4

REPORT INFORMATION
  Report Type: Spontaneous
  Country: FR (occurrence: FR)
  Receive Date: 20131202
  Receipt Date: 20131202
  Transmission Date: 20140711
  Serious: Yes (Other)
  Sender: FDA-Public Use
  Company Number: FR-PFIZER INC-2013126271

PATIENT
  Age: 76 Year
  Sex: Male

DRUGS (17)
  1. AMLOR [Suspect]
     Dosage: 5 MG, UNK
     Dates: start: 20130306
  2. PERINDOPRIL ARROW [Suspect]
     Dosage: 4 MG, 1X/DAY
     Route: 048
     Dates: start: 20130307, end: 20130310
  3. PERINDOPRIL ARROW [Suspect]
     Dosage: 6 MG, 1X/DAY
     Route: 048
     Dates: start: 20130311
  4. CALCIDOSE [Suspect]
     Dosage: 2 DF, DAILY
     Route: 048
     Dates: start: 20130306
  5. UVEDOSE [Suspect]
     Dosage: 1 DF, EVERY 3 WEEKS
     Route: 048
     Dates: start: 20130313
  6. ASPEGIC [Concomitant]
     Dosage: 250 MG, DAILY
  7. INEXIUM [Concomitant]
     Dosage: 20 MG, DAILY
  8. LOXEN [Concomitant]
     Dosage: 50 MG, 2X/DAY
     Dates: end: 20130306
  9. TRIATEC [Concomitant]
     Dosage: 1.25 MG, DAILY
     Dates: end: 20130306
  10. LEVETIRACETAM [Concomitant]
     Dosage: 500 MG, UNK
  11. TAHOR [Concomitant]
     Dosage: 2 DF OF 40 MG DAILY
  12. AMIODARONE [Concomitant]
     Dosage: 200 MG, DAILY
  13. FLUOXETINE [Concomitant]
     Dosage: 20 MG, DAILY
  14. XATRAL [Concomitant]
     Dosage: 10 MG, 1X/DAY
  15. FORLAX [Concomitant]
     Dosage: 10 G, 4X/DAY
  16. LOVENOX [Concomitant]
     Dosage: 4000 IU, 1X/DAY
  17. MYCOSTER [Concomitant]
     Dosage: UNK

REACTIONS (3)
  - Lymphopenia [Not Recovered/Not Resolved]
  - Malnutrition [Recovered/Resolved]
  - Cystitis noninfective [Unknown]
